FAERS Safety Report 20126508 (Version 1)
Quarter: 2021Q4

REPORT INFORMATION
  Report Type: Spontaneous
  Country: IT (occurrence: IT)
  Receive Date: 20211129
  Receipt Date: 20211129
  Transmission Date: 20220303
  Serious: Yes (Other)
  Sender: FDA-Public Use
  Company Number: IT-Accord-239495

PATIENT

DRUGS (4)
  1. BORTEZOMIB [Suspect]
     Active Substance: BORTEZOMIB
     Indication: Product used for unknown indication
     Dosage: 46.8 MILLIGRAM, CYCLE
  2. PREDNISONE [Suspect]
     Active Substance: PREDNISONE
     Indication: Product used for unknown indication
     Dosage: 60 MILLIGRAM, CYCLE
  3. MELPHALAN [Suspect]
     Active Substance: MELPHALAN
     Indication: Product used for unknown indication
     Dosage: 9 MILLIGRAM, CYCLE
  4. ACYCLO-V [Concomitant]
     Dosage: UNK
     Route: 048

REACTIONS (1)
  - Deep vein thrombosis [Unknown]
